FAERS Safety Report 8264763-X (Version None)
Quarter: 2012Q2

REPORT INFORMATION
  Report Type: 
  Country: None (occurrence: None)
  Receive Date: 20120406
  Receipt Date: 20120326
  Transmission Date: 20120825
  Serious: Yes (Hospitalization)
  Sender: FDA-Public Use
  Company Number: JP-JNJFOC-20110901590

PATIENT
  Sex: Male
  Weight: 66 kg

DRUGS (7)
  1. VOLTAREN-XR [Concomitant]
  2. FAMOTIDINE [Concomitant]
  3. MOBIC [Concomitant]
  4. RHEUMATREX [Suspect]
     Indication: RHEUMATOID ARTHRITIS
     Route: 048
     Dates: start: 19970101, end: 20101228
  5. REMICADE [Suspect]
     Indication: RHEUMATOID ARTHRITIS
     Dosage: NUMBER 23 AND FINAL DOSE
     Route: 042
     Dates: start: 20101113
  6. REMICADE [Suspect]
     Route: 042
     Dates: start: 20070101
  7. PREDNISOLONE [Concomitant]

REACTIONS (4)
  - PNEUMOCYSTIS JIROVECI PNEUMONIA [None]
  - LYMPHOPROLIFERATIVE DISORDER [None]
  - HISTIOCYTOSIS HAEMATOPHAGIC [None]
  - HERPES SIMPLEX [None]
